FAERS Safety Report 21423540 (Version 1)
Quarter: 2022Q4

REPORT INFORMATION
  Report Type: Spontaneous
  Country: US (occurrence: US)
  Receive Date: 20221007
  Receipt Date: 20221007
  Transmission Date: 20230113
  Serious: No
  Sender: FDA-Public Use
  Company Number: US-HERON THERAPEUTICS, INC-HRTX-2022-000826

PATIENT
  Age: 26 Year
  Sex: Female

DRUGS (1)
  1. ZYNRELEF [Suspect]
     Active Substance: BUPIVACAINE\MELOXICAM
     Indication: Postoperative analgesia
     Dosage: 5 MILLILITER, SINGLE
     Route: 026
     Dates: start: 20220616, end: 20220616

REACTIONS (2)
  - Erythema [Recovered/Resolved]
  - Blister [Recovered/Resolved]

NARRATIVE: CASE EVENT DATE: 20220621
